FAERS Safety Report 18556390 (Version 1)
Quarter: 2020Q4

REPORT INFORMATION
  Report Type: Spontaneous
  Country: US (occurrence: US)
  Receive Date: 20201128
  Receipt Date: 20201128
  Transmission Date: 20210114
  Serious: Yes (Other)
  Sender: FDA-Public Use
  Company Number: US-009507513-2011USA016017

PATIENT
  Age: 56 Year
  Sex: Female

DRUGS (10)
  1. CYMBALTA [Concomitant]
     Active Substance: DULOXETINE HYDROCHLORIDE
  2. VITAMINS (UNSPECIFIED) [Concomitant]
     Active Substance: VITAMINS
  3. XANAX [Concomitant]
     Active Substance: ALPRAZOLAM
  4. DIOVAN HCT [Suspect]
     Active Substance: HYDROCHLOROTHIAZIDE\VALSARTAN
  5. VITAMIN B12 RATIOPHARM [Concomitant]
     Active Substance: CYANOCOBALAMIN
  6. PRINIVIL [Suspect]
     Active Substance: LISINOPRIL
     Dosage: UNK
  7. K-DUR [Concomitant]
     Active Substance: POTASSIUM CHLORIDE
  8. PRILOSEC [Concomitant]
     Active Substance: OMEPRAZOLE MAGNESIUM
  9. VERAPAMIL [Concomitant]
     Active Substance: VERAPAMIL HYDROCHLORIDE
  10. LEVOTHYROXINE SODIUM. [Concomitant]
     Active Substance: LEVOTHYROXINE SODIUM

REACTIONS (2)
  - Cough [Unknown]
  - Intestinal perforation [Unknown]
